FAERS Safety Report 5623512-1 (Version None)
Quarter: 2008Q1

REPORT INFORMATION
  Report Type: 
  Country: None (occurrence: None)
  Receive Date: 20080212
  Receipt Date: 20080201
  Transmission Date: 20080703
  Serious: Yes (Hospitalization)
  Sender: FDA-Public Use
  Company Number: US-ELI_LILLY_AND_COMPANY-US200802000509

PATIENT
  Sex: Female

DRUGS (11)
  1. BYETTA [Suspect]
     Dosage: 5 UG, 2/D
     Route: 058
     Dates: start: 20070101, end: 20070101
  2. BYETTA [Suspect]
     Dosage: 10 UG, 2/D
     Route: 058
     Dates: start: 20070101, end: 20070830
  3. BYETTA [Suspect]
     Dosage: 5 UG, 2/D
     Route: 058
     Dates: start: 20070901, end: 20071101
  4. BYETTA [Suspect]
     Dosage: 10 UG, 2/D
     Route: 058
     Dates: start: 20071101
  5. GLIMEPIRIDE [Concomitant]
     Dosage: UNK, UNKNOWN
     Dates: end: 20070830
  6. GLIMEPIRIDE [Concomitant]
     Dosage: UNK, UNKNOWN
  7. LANTUS [Concomitant]
     Dosage: UNK, AS NEEDED
  8. METFORMIN HCL [Concomitant]
     Dosage: UNK, UNKNOWN
     Dates: end: 20070830
  9. METFORMIN HCL [Concomitant]
     Dosage: UNK, UNKNOWN
  10. TOPROL [Concomitant]
     Indication: HYPERTENSION
     Dosage: UNK, 2/D
     Route: 048
  11. NORVASC [Concomitant]
     Indication: BLOOD PRESSURE
     Dosage: UNK, UNKNOWN

REACTIONS (9)
  - ASTHENIA [None]
  - BACK DISORDER [None]
  - BACK PAIN [None]
  - BLOOD GLUCOSE DECREASED [None]
  - BLOOD GLUCOSE INCREASED [None]
  - BLOOD PRESSURE DECREASED [None]
  - DECREASED APPETITE [None]
  - MEMORY IMPAIRMENT [None]
  - WEIGHT DECREASED [None]
